FAERS Safety Report 19108620 (Version 1)
Quarter: 2021Q2

REPORT INFORMATION
  Report Type: Spontaneous
  Country: FR (occurrence: FR)
  Receive Date: 20210408
  Receipt Date: 20210408
  Transmission Date: 20210717
  Serious: Yes (Hospitalization)
  Sender: FDA-Public Use
  Company Number: US-INDIVIOR LIMITED-INDV-129123-2021

PATIENT

DRUGS (2)
  1. NALMEFENE [Suspect]
     Active Substance: NALMEFENE
     Indication: DRUG THERAPY
     Dosage: UNK
     Route: 065
  2. BUPRENORPHINE. [Suspect]
     Active Substance: BUPRENORPHINE
     Indication: DRUG DEPENDENCE
     Dosage: 12 MILLIGRAM, DAILY
     Route: 065

REACTIONS (2)
  - Contraindicated product administered [Unknown]
  - Hospitalisation [Unknown]
